FAERS Safety Report 7504044-2 (Version None)
Quarter: 2011Q2

REPORT INFORMATION
  Report Type: 
  Country: None (occurrence: None)
  Receive Date: 20110518
  Receipt Date: 20110516
  Transmission Date: 20111010
  Serious: Yes (Death, Hospitalization, Other)
  Sender: FDA-Public Use
  Company Number: 2011SP000433

PATIENT
  Age: 62 Year
  Sex: Male
  Weight: 101 kg

DRUGS (33)
  1. TEMOZOLOMIDE [Suspect]
     Indication: PROSTATE CANCER
     Dosage: 150, 200  MG/M2, PO
     Route: 048
     Dates: start: 20100810, end: 20100814
  2. TEMOZOLOMIDE [Suspect]
     Indication: BILATERAL ORCHIDECTOMY
     Dosage: 150, 200  MG/M2, PO
     Route: 048
     Dates: start: 20100810, end: 20100814
  3. TEMOZOLOMIDE [Suspect]
     Indication: PROSTATE CANCER
     Dosage: 150, 200  MG/M2, PO
     Route: 048
     Dates: start: 20100907, end: 20100911
  4. TEMOZOLOMIDE [Suspect]
     Indication: BILATERAL ORCHIDECTOMY
     Dosage: 150, 200  MG/M2, PO
     Route: 048
     Dates: start: 20100907, end: 20100911
  5. TEMOZOLOMIDE [Suspect]
     Indication: PROSTATE CANCER
     Dosage: 150, 200  MG/M2, PO
     Route: 048
     Dates: start: 20101005, end: 20101009
  6. TEMOZOLOMIDE [Suspect]
     Indication: BILATERAL ORCHIDECTOMY
     Dosage: 150, 200  MG/M2, PO
     Route: 048
     Dates: start: 20101005, end: 20101009
  7. TEMOZOLOMIDE [Suspect]
     Indication: PROSTATE CANCER
     Dosage: 150, 200  MG/M2, PO
     Route: 048
     Dates: start: 20101102, end: 20101106
  8. TEMOZOLOMIDE [Suspect]
     Indication: BILATERAL ORCHIDECTOMY
     Dosage: 150, 200  MG/M2, PO
     Route: 048
     Dates: start: 20101102, end: 20101106
  9. ABT-888 [Suspect]
     Dosage: 40, 80 MG, BID, PO
     Route: 048
     Dates: start: 20100810, end: 20101108
  10. TYLOX [Concomitant]
  11. TAMSULOSIN HCL [Concomitant]
  12. COLECALCIFEROL [Concomitant]
  13. INSULIN HUMAN INJECTION, ISOPHANE [Concomitant]
  14. MEGESTROL ACETATE [Concomitant]
  15. LOSARTAN POTASSIUM [Concomitant]
  16. CENTRUM SILVER [Concomitant]
  17. MEGESTROL ACETATE [Concomitant]
  18. LEUPROLIDE ACETATE [Concomitant]
  19. ASPIRIN [Concomitant]
  20. IBUPROFEN [Concomitant]
  21. COLACE [Concomitant]
  22. LACTULOSE [Concomitant]
  23. CORICIDIN [Concomitant]
  24. DULCOLAX [Concomitant]
  25. ATENOLOL [Concomitant]
  26. FUROSEMIDE [Concomitant]
  27. ZOLEDRONIC ACID [Concomitant]
  28. LEKOVIT [Concomitant]
  29. INSULIN HUMAN [Concomitant]
  30. MS CONTIN [Concomitant]
  31. SENNA ALEXANDRINA [Concomitant]
  32. GLIPIZIDE [Concomitant]
  33. IBUPROFEN [Concomitant]

REACTIONS (14)
  - ATELECTASIS [None]
  - EPISTAXIS [None]
  - RESPIRATORY FAILURE [None]
  - PROSTATE CANCER [None]
  - ANAEMIA [None]
  - METASTASES TO BONE [None]
  - COLD SWEAT [None]
  - HEPATIC FAILURE [None]
  - BACK PAIN [None]
  - RENAL FAILURE [None]
  - THROMBOCYTOPENIA [None]
  - PNEUMONIA [None]
  - HEPATORENAL SYNDROME [None]
  - BLOOD GLUCOSE INCREASED [None]
